FAERS Safety Report 17398960 (Version 1)
Quarter: 2020Q1

REPORT INFORMATION
  Report Type: Report from Study
  Country: US (occurrence: US)
  Receive Date: 20200210
  Receipt Date: 20200210
  Transmission Date: 20200409
  Serious: Yes (Hospitalization)
  Sender: FDA-Public Use
  Company Number: PHHY2018US015245

PATIENT
  Age: 11 Year
  Sex: Male
  Weight: 50.4 kg

DRUGS (1)
  1. KYMRIAH [Suspect]
     Active Substance: TISAGENLECLEUCEL
     Indication: ACUTE LYMPHOCYTIC LEUKAEMIA
     Dosage: 2.0X10^6 TRANSDUCED CELLS PER KG
     Route: 042
     Dates: start: 20180116

REACTIONS (5)
  - Hypotension [Unknown]
  - Headache [Recovered/Resolved]
  - Tachycardia [Unknown]
  - Cytokine release syndrome [Not Recovered/Not Resolved]
  - Pyrexia [Unknown]

NARRATIVE: CASE EVENT DATE: 20180124
